FAERS Safety Report 7501380-0 (Version None)
Quarter: 2011Q2

REPORT INFORMATION
  Report Type: 
  Country: None (occurrence: None)
  Receive Date: 20110524
  Receipt Date: 20110511
  Transmission Date: 20111010
  Serious: Yes (Other)
  Sender: FDA-Public Use
  Company Number: IT-WATSON-2011-05621

PATIENT
  Age: 22 Year
  Sex: Male

DRUGS (3)
  1. CYCLOPHOSPHAMIDE [Suspect]
     Indication: BEHCET'S SYNDROME
     Dosage: 5 MG/KG, DAILY
     Route: 065
  2. METHOTREXATE [Suspect]
     Indication: BEHCET'S SYNDROME
     Dosage: 20 MG/WEEK
     Route: 065
  3. AZATHIOPRINE [Suspect]
     Indication: BEHCET'S SYNDROME
     Dosage: UNK

REACTIONS (3)
  - NEPHROLITHIASIS [None]
  - RENAL IMPAIRMENT [None]
  - TRANSAMINASES INCREASED [None]
